FAERS Safety Report 7107839-2 (Version None)
Quarter: 2010Q4

REPORT INFORMATION
  Report Type: 
  Country: None (occurrence: None)
  Receive Date: 20101117
  Receipt Date: 20101101
  Transmission Date: 20110411
  Serious: Yes (Hospitalization)
  Sender: FDA-Public Use
  Company Number: US-BAYER-201033407NA

PATIENT
  Age: 21 Year
  Sex: Female
  Weight: 83 kg

DRUGS (5)
  1. YAZ [Suspect]
     Indication: ORAL CONTRACEPTION
     Dates: start: 20070301, end: 20071101
  2. YASMIN [Suspect]
     Indication: ORAL CONTRACEPTION
  3. CARAFATE [Concomitant]
     Indication: ABDOMINAL PAIN UPPER
     Dosage: 1G/10ML
     Dates: start: 20070908
  4. PRILOSEC [Concomitant]
     Indication: GASTROOESOPHAGEAL REFLUX DISEASE
     Dosage: 1 PILL ONCE DAILY
  5. ASCORBIC ACID [Concomitant]

REACTIONS (8)
  - ABDOMINAL PAIN UPPER [None]
  - CHOLECYSTITIS CHRONIC [None]
  - CHOLELITHIASIS [None]
  - DYSPEPSIA [None]
  - LYMPHOID TISSUE HYPERPLASIA [None]
  - MOBILITY DECREASED [None]
  - POST PROCEDURAL DRAINAGE [None]
  - PROCEDURAL PAIN [None]
